FAERS Safety Report 5948054-5 (Version None)
Quarter: 2008Q4

REPORT INFORMATION
  Report Type: 
  Country: None (occurrence: None)
  Receive Date: 20081111
  Receipt Date: 20081105
  Transmission Date: 20090506
  Serious: Yes (Death, Hospitalization, Other)
  Sender: FDA-Public Use
  Company Number: US-CELGENEUS-163-21880-08101056

PATIENT
  Sex: Female

DRUGS (19)
  1. REVLIMID [Suspect]
     Dates: start: 20080415, end: 20080501
  2. REVLIMID [Suspect]
     Route: 048
     Dates: start: 20080612, end: 20080601
  3. DECADRON [Concomitant]
     Indication: DRUG USE FOR UNKNOWN INDICATION
     Route: 065
  4. SYNTHROID [Concomitant]
     Indication: HYPOTHYROIDISM
     Route: 065
  5. SYNTHROID [Concomitant]
     Route: 065
  6. SYNTHROID [Concomitant]
     Route: 065
  7. ZANTAC [Concomitant]
     Indication: DRUG USE FOR UNKNOWN INDICATION
     Route: 065
  8. ASPIRIN [Concomitant]
     Indication: DRUG USE FOR UNKNOWN INDICATION
     Route: 065
  9. DARVOCET [Concomitant]
     Indication: BACK PAIN
     Route: 048
  10. PROCRIT [Concomitant]
     Indication: DRUG USE FOR UNKNOWN INDICATION
     Route: 050
  11. METAMUCIL [Concomitant]
     Indication: DRUG USE FOR UNKNOWN INDICATION
     Route: 065
  12. SENNA [Concomitant]
     Indication: CONSTIPATION
     Route: 048
     Dates: start: 20080101
  13. AUGMENTIN '125' [Concomitant]
     Indication: URINARY TRACT INFECTION
     Route: 048
     Dates: start: 20080501
  14. CEFTAZIDIME [Concomitant]
     Indication: INFECTION
     Route: 051
     Dates: start: 20080501
  15. CEFTAZIDIME [Concomitant]
     Dates: start: 20080601
  16. NEUPOGEN [Concomitant]
     Indication: DRUG USE FOR UNKNOWN INDICATION
     Route: 051
     Dates: start: 20080501
  17. NEUPOGEN [Concomitant]
     Dates: start: 20080601
  18. RANITIDINE [Concomitant]
     Indication: DRUG USE FOR UNKNOWN INDICATION
     Route: 065
     Dates: start: 20080501
  19. MULTI-VITAMINS [Concomitant]
     Indication: DRUG USE FOR UNKNOWN INDICATION
     Route: 065

REACTIONS (18)
  - ANAEMIA [None]
  - ASTHENIA [None]
  - BACK PAIN [None]
  - CONSTIPATION [None]
  - DEATH [None]
  - DEHYDRATION [None]
  - DIARRHOEA [None]
  - FEBRILE NEUTROPENIA [None]
  - HYPOKALAEMIA [None]
  - HYPOTENSION [None]
  - ILEUS [None]
  - METABOLIC ACIDOSIS [None]
  - OEDEMA PERIPHERAL [None]
  - PANCYTOPENIA [None]
  - PYREXIA [None]
  - SEPSIS [None]
  - TACHYCARDIA [None]
  - URINARY TRACT INFECTION [None]
